FAERS Safety Report 9159716 (Version 1)
Quarter: 2013Q1

REPORT INFORMATION
  Report Type: Spontaneous
  Country: US (occurrence: US)
  Receive Date: 20130313
  Receipt Date: 20130313
  Transmission Date: 20140127
  Serious: No
  Sender: FDA-Public Use
  Company Number: US-PFIZER INC-2013080452

PATIENT
  Sex: 0

DRUGS (2)
  1. VECURONIUM BROMIDE [Suspect]
     Dosage: 10 MG, UNK
  2. VECURONIUM BROMIDE [Suspect]
     Dosage: 10 MG, UNK

REACTIONS (1)
  - Drug ineffective [Unknown]
